FAERS Safety Report 6401544-3 (Version None)
Quarter: 2009Q4

REPORT INFORMATION
  Report Type: 
  Country: None (occurrence: None)
  Receive Date: 20091013
  Receipt Date: 20091013
  Transmission Date: 20100525
  Serious: Yes (Hospitalization)
  Sender: FDA-Public Use
  Company Number: None

PATIENT
  Age: 60 Year
  Sex: Male

DRUGS (1)
  1. DOXYCYCLINE [Suspect]
     Indication: WOUND INFECTION
     Dosage: 100 MG BID PO
     Route: 048
     Dates: start: 20090923, end: 20091003

REACTIONS (1)
  - PANCREATITIS [None]
